FAERS Safety Report 24831627 (Version 1)
Quarter: 2025Q1

REPORT INFORMATION
  Report Type: Spontaneous
  Country: US (occurrence: US)
  Receive Date: 20250110
  Receipt Date: 20250110
  Transmission Date: 20250408
  Serious: Yes (Hospitalization, Other)
  Sender: INCYTE
  Company Number: US-INCYTE CORPORATION-2025IN000107

PATIENT

DRUGS (2)
  1. JAKAFI [Suspect]
     Active Substance: RUXOLITINIB
     Indication: Myeloproliferative neoplasm
     Dosage: 25 MILLIGRAM, BID
     Route: 048
     Dates: start: 20230727
  2. JAKAFI [Suspect]
     Active Substance: RUXOLITINIB
     Indication: Back pain

REACTIONS (4)
  - Localised infection [Not Recovered/Not Resolved]
  - Neoplasm malignant [Recovered/Resolved]
  - Onychomadesis [Unknown]
  - Off label use [Unknown]

NARRATIVE: CASE EVENT DATE: 20230727
